FAERS Safety Report 6906361-3 (Version None)
Quarter: 2010Q3

REPORT INFORMATION
  Report Type: 
  Country: None (occurrence: None)
  Receive Date: 20100804
  Receipt Date: 20100803
  Transmission Date: 20110219
  Serious: Yes (Other)
  Sender: FDA-Public Use
  Company Number: A0865626A

PATIENT
  Age: 53 Year
  Sex: Female

DRUGS (4)
  1. SUMATRIPTAN SUCCINATE [Suspect]
     Indication: MIGRAINE
     Dosage: 1INJ AS REQUIRED
     Route: 058
     Dates: start: 20100201
  2. SUMATRIPTAN AUTOINJECTOR [Suspect]
  3. CYMBALTA [Concomitant]
     Indication: MULTIPLE SCLEROSIS
     Dosage: 60MG PER DAY
     Route: 048
  4. FENTANYL CITRATE [Concomitant]
     Dosage: 75MCG FOUR TIMES PER DAY
     Route: 048

REACTIONS (4)
  - APPLICATION SITE BLEEDING [None]
  - APPLICATION SITE PAIN [None]
  - APPLICATION SITE SWELLING [None]
  - PRODUCT QUALITY ISSUE [None]
